FAERS Safety Report 18811104 (Version 4)
Quarter: 2021Q1

REPORT INFORMATION
  Report Type: Report from Study
  Country: None (occurrence: CO)
  Receive Date: 20210129
  Receipt Date: 20210305
  Transmission Date: 20210419
  Serious: Yes (Hospitalization, Other)
  Sender: FDA-Public Use
  Company Number: CO-ABBVIE-21K-036-3747239-00

PATIENT
  Age: 75 Year
  Sex: Male
  Weight: 76 kg

DRUGS (2)
  1. VENCLEXTA [Suspect]
     Active Substance: VENETOCLAX
     Indication: CHRONIC LYMPHOCYTIC LEUKAEMIA REFRACTORY
     Route: 048
     Dates: start: 20210117, end: 20210209
  2. VENCLEXTA [Suspect]
     Active Substance: VENETOCLAX
     Indication: CHRONIC LYMPHOCYTIC LEUKAEMIA RECURRENT
     Route: 048
     Dates: start: 20210223

REACTIONS (9)
  - Retinal detachment [Not Recovered/Not Resolved]
  - Eye irritation [Not Recovered/Not Resolved]
  - Blindness [Not Recovered/Not Resolved]
  - Thrombocytopenia [Recovering/Resolving]
  - Platelet count decreased [Not Recovered/Not Resolved]
  - Asthenia [Not Recovered/Not Resolved]
  - Visual impairment [Not Recovered/Not Resolved]
  - Anaemia [Recovering/Resolving]
  - Neutrophilia [Recovering/Resolving]

NARRATIVE: CASE EVENT DATE: 202101
